FAERS Safety Report 4525468-1 (Version None)
Quarter: 2004Q4

REPORT INFORMATION
  Report Type: 
  Country: None (occurrence: None)
  Receive Date: 20041108
  Receipt Date: 20040202
  Transmission Date: 20050328
  Serious: Yes (Other)
  Sender: FDA-Public Use
  Company Number: US-JNJFOC-20040608274

PATIENT
  Age: 20 Year
  Sex: Female

DRUGS (2)
  1. TYLENOL (GELTAB) [Suspect]
     Indication: DRUG USE FOR UNKNOWN INDICATION
     Dosage: 91 G, 1 IN 1 TOTAL, ORAL
     Route: 048
     Dates: start: 20040202, end: 20040202
  2. PRENATAL VITAMIN (PRENATAL VITAMINS) [Concomitant]

REACTIONS (2)
  - INTENTIONAL OVERDOSE [None]
  - VOMITING [None]
